FAERS Safety Report 8416249-7 (Version None)
Quarter: 2012Q2

REPORT INFORMATION
  Report Type: 
  Country: None (occurrence: None)
  Receive Date: 20120323
  Receipt Date: 20111221
  Transmission Date: 20120825
  Serious: Yes (Hospitalization)
  Sender: FDA-Public Use
  Company Number: 163-21880-11122823

PATIENT
  Age: 79 Year
  Sex: Male

DRUGS (31)
  1. BUPROPION HCL [Concomitant]
  2. EPOGEN [Concomitant]
  3. CO Q10 (UBIDECARENONE) [Concomitant]
  4. MULTIVITMIN (MULTIVITAMINS) [Concomitant]
  5. PREVACI (LANSOPRAZOLE) [Concomitant]
  6. SYNTHROID [Concomitant]
  7. TRICOR [Concomitant]
  8. LORAZEPAM [Concomitant]
  9. PRISTIQ (DESVENLAFAXINSUCCINATE) [Concomitant]
  10. ZOLPIDEM [Concomitant]
  11. DEXAMETHASONE [Concomitant]
  12. AMBIEN [Concomitant]
  13. VITAMIN B12 [Concomitant]
  14. CENTRUM (CENTRUM) [Concomitant]
  15. FERR-SEQUEL (ALL OTHER THERAPEUTIC PRODUCTS) [Concomitant]
  16. PROCHLORPERAZINE MALEATE [Concomitant]
  17. SENOKOT [Concomitant]
  18. FISH OIL (FISH OIL) [Concomitant]
  19. VELCADE [Concomitant]
  20. REVLIMID [Suspect]
     Indication: MULTIPLE MYELOMA
     Dosage: 25 MG, DILY X 14 DAYS, THEN 7 DAYS OFF, PO
     Route: 048
     Dates: start: 20111205
  21. ACCUPRIL [Concomitant]
  22. LOVAZA [Concomitant]
  23. PRAVASTATIN [Concomitant]
  24. AMIODARONE HCL [Concomitant]
  25. ASPIRIN [Concomitant]
  26. FOLIC ACID [Concomitant]
  27. LORTAB [Concomitant]
  28. NORVASC [Concomitant]
  29. VERAPAMIL [Concomitant]
  30. VITAMIN D [Concomitant]
  31. ZETIA [Concomitant]

REACTIONS (2)
  - ORAL PAIN [None]
  - RENAL FAILURE [None]
